FAERS Safety Report 10257705 (Version 6)
Quarter: 2014Q4

REPORT INFORMATION
  Report Type: Report from Study
  Country: US (occurrence: US)
  Receive Date: 20140625
  Receipt Date: 20141126
  Transmission Date: 20150528
  Serious: Yes (Hospitalization)
  Sender: FDA-Public Use
  Company Number: US-NOVOPROD-413487

PATIENT
  Age: 59 Year
  Sex: Female
  Weight: 81.18 kg

DRUGS (13)
  1. IDEG 100U VIAL [Suspect]
     Active Substance: INSULIN DEGLUDEC
     Indication: TYPE 2 DIABETES MELLITUS
     Dosage: 50.0,,QD
     Route: 058
     Dates: start: 20140304, end: 20140604
  2. INSULIN GLARGINE [Concomitant]
     Active Substance: INSULIN GLARGINE
     Dosage: UNK
     Dates: start: 20140607, end: 20140619
  3. IDEG 100U VIAL [Suspect]
     Active Substance: INSULIN DEGLUDEC
     Dosage: UNK
     Dates: start: 20140620
  4. NOVORAPID [Suspect]
     Active Substance: INSULIN ASPART
     Dosage: UNK
     Dates: start: 20140620
  5. LOVENOX [Concomitant]
     Active Substance: ENOXAPARIN SODIUM
     Dosage: 40 MG, UNK
  6. LACTULOSE. [Concomitant]
     Active Substance: LACTULOSE
     Dates: start: 20140612, end: 20140615
  7. ACETAMINOPHEN. [Concomitant]
     Active Substance: ACETAMINOPHEN
     Dosage: 650 MG, UNK
  8. LOVENOX [Concomitant]
     Active Substance: ENOXAPARIN SODIUM
     Dosage: UNK
     Dates: start: 20140607
  9. PSYLLIUM                           /01328801/ [Concomitant]
     Active Substance: PLANTAGO SEED
     Dates: start: 20140612, end: 20140619
  10. NORCO [Concomitant]
     Active Substance: ACETAMINOPHEN\HYDROCODONE BITARTRATE
     Dosage: 7.5/325 MG
  11. NOVORAPID [Suspect]
     Active Substance: INSULIN ASPART
     Indication: TYPE 2 DIABETES MELLITUS
     Dosage: 84 U, QD
     Route: 058
     Dates: start: 20140304, end: 20140605
  12. INSULIN ASPART [Concomitant]
     Active Substance: INSULIN ASPART
     Dates: start: 20140605, end: 20140619
  13. NORCO [Concomitant]
     Active Substance: ACETAMINOPHEN\HYDROCODONE BITARTRATE
     Dosage: UNK
     Dates: start: 20140620

REACTIONS (3)
  - Fibula fracture [Recovered/Resolved]
  - Tibia fracture [Recovered/Resolved]
  - Hypoglycaemia [Recovered/Resolved]

NARRATIVE: CASE EVENT DATE: 20140605
